FAERS Safety Report 4523223-X (Version None)
Quarter: 2004Q4

REPORT INFORMATION
  Report Type: 
  Country: None (occurrence: None)
  Receive Date: 20041203
  Receipt Date: 20041119
  Transmission Date: 20050328
  Serious: Yes (Other)
  Sender: FDA-Public Use
  Company Number: HQWYE587009APR03

PATIENT
  Age: 34 Year
  Sex: Male

DRUGS (13)
  1. REFACTO [Suspect]
     Indication: FACTOR VIII DEFICIENCY
     Dosage: 1000 IU EVERY OTHER DAY (11 IU/KG)
     Route: 042
     Dates: start: 20021112, end: 20030407
  2. REFACTO [Suspect]
  3. REFACTO [Suspect]
  4. REFACTO [Concomitant]
  5. REFACTO [Suspect]
  6. REFACTO [Suspect]
  7. REFACTO [Suspect]
  8. DF118 (DIHYDROCODEINE BITARTRATE) [Concomitant]
  9. DICLOFENAC (DICLOFENAC) [Concomitant]
  10. INDOMETHACIN [Concomitant]
  11. DIAZEPAM [Concomitant]
  12. TRAMADOL HCL [Concomitant]
  13. PAROXETINE HCL [Concomitant]

REACTIONS (4)
  - ANTI FACTOR VIII ANTIBODY POSITIVE [None]
  - COAGULATION FACTOR VII LEVEL DECREASED [None]
  - COAGULATION FACTOR VIII LEVEL DECREASED [None]
  - DRUG EFFECT DECREASED [None]
